FAERS Safety Report 6908425-7 (Version None)
Quarter: 2010Q3

REPORT INFORMATION
  Report Type: 
  Country: None (occurrence: None)
  Receive Date: 20100805
  Receipt Date: 20100727
  Transmission Date: 20110219
  Serious: No
  Sender: FDA-Public Use
  Company Number: US-JNJFOC-20100404441

PATIENT
  Sex: Male
  Weight: 136.08 kg

DRUGS (4)
  1. DURAGESIC-100 [Suspect]
     Indication: BACK PAIN
     Route: 062
  2. DURAGESIC-100 [Suspect]
     Dosage: NDC:50458-094-05
     Route: 062
  3. DURAGESIC-100 [Suspect]
     Route: 062
  4. FENTANYL-100 [Suspect]
     Indication: BACK PAIN
     Route: 062

REACTIONS (3)
  - APPLICATION SITE REACTION [None]
  - DRUG INEFFECTIVE [None]
  - WRONG TECHNIQUE IN DRUG USAGE PROCESS [None]
